FAERS Safety Report 5545435-9 (Version None)
Quarter: 2007Q4

REPORT INFORMATION
  Report Type: 
  Country: None (occurrence: None)
  Receive Date: 20071211
  Receipt Date: 20071203
  Transmission Date: 20080405
  Serious: Yes (Other)
  Sender: FDA-Public Use
  Company Number: US-JNJFOC-20070904393

PATIENT
  Sex: Male

DRUGS (6)
  1. REMICADE [Suspect]
     Indication: RHEUMATOID ARTHRITIS
     Route: 042
  2. SULFASALAZINE [Concomitant]
  3. MERCAPTOPURINE [Concomitant]
  4. HYDROXYCHLOROQUINE SULFATE [Concomitant]
  5. LEFLUNOMIDE [Concomitant]
  6. PREDNISONE [Concomitant]

REACTIONS (2)
  - LOCALISED INFECTION [None]
  - NEOPLASM SKIN [None]
